FAERS Safety Report 7457627-2 (Version None)
Quarter: 2011Q2

REPORT INFORMATION
  Report Type: 
  Country: None (occurrence: None)
  Receive Date: 20110504
  Receipt Date: 20110420
  Transmission Date: 20111010
  Serious: Yes (Other)
  Sender: FDA-Public Use
  Company Number: CA-JNJFOC-20110409775

PATIENT
  Sex: Female
  Weight: 67.4 kg

DRUGS (4)
  1. REMICADE [Suspect]
     Indication: CROHN'S DISEASE
     Dosage: HAS HAD 36 INFUSIONS
     Route: 042
  2. XANAX [Concomitant]
  3. CONCERTA [Concomitant]
  4. PROZAC [Concomitant]

REACTIONS (3)
  - INFLUENZA [None]
  - DIARRHOEA [None]
  - VAGINAL FISTULA [None]
